FAERS Safety Report 20032431 (Version 3)
Quarter: 2021Q4

REPORT INFORMATION
  Report Type: Spontaneous
  Country: FR (occurrence: FR)
  Receive Date: 20211103
  Receipt Date: 20211207
  Transmission Date: 20220303
  Serious: Yes (Other)
  Sender: FDA-Public Use
  Company Number: FR-BAYER-2021A240752

PATIENT

DRUGS (1)
  1. EYLEA [Suspect]
     Active Substance: AFLIBERCEPT
     Indication: Retinal vein occlusion
     Dosage: TOTAL OF 6 DOSES PRIOR EVENT ^SMALL DOTS
     Route: 031

REACTIONS (4)
  - Blindness transient [Unknown]
  - Vitreous floaters [Unknown]
  - Malaise [Unknown]
  - Intra-ocular injection complication [Unknown]
